FAERS Safety Report 5978920-6 (Version None)
Quarter: 2008Q4

REPORT INFORMATION
  Report Type: 
  Country: None (occurrence: None)
  Receive Date: 20081128
  Receipt Date: 20081112
  Transmission Date: 20090506
  Serious: Yes (Other)
  Sender: FDA-Public Use
  Company Number: 100#08#2008-05752

PATIENT
  Age: 18 Month
  Sex: Male

DRUGS (6)
  1. CARBOPLATIN (CARBOPLATIN) [Suspect]
     Indication: RHABDOMYOSARCOMA
     Dosage: 840 MG
  2. EPIRUBICIN [Suspect]
     Indication: RHABDOMYOSARCOMA
     Dosage: 840 MG
  3. IFOSFAMIDE [Suspect]
     Indication: RHABDOMYOSARCOMA
  4. VINCRISTINE [Suspect]
     Indication: RHABDOMYOSARCOMA
     Dosage: 10.92 MG
  5. ACTINOMYCIN D (ACTINOMYCIN D) [Suspect]
     Indication: RHABDOMYOSARCOMA
     Dosage: 2.52 MG
  6. ETOPOSIDE [Suspect]
     Indication: RHABDOMYOSARCOMA
     Dosage: 117 MG

REACTIONS (4)
  - METASTASES TO LYMPH NODES [None]
  - RADIATION EXPOSURE [None]
  - THERAPEUTIC RESPONSE DECREASED [None]
  - THYROID CANCER [None]
